FAERS Safety Report 14749930 (Version 7)
Quarter: 2020Q2

REPORT INFORMATION
  Report Type: Spontaneous
  Country: US (occurrence: US)
  Receive Date: 20180412
  Receipt Date: 20200510
  Transmission Date: 20200713
  Serious: No
  Sender: FDA-Public Use
  Company Number: US-TEVA-2018-US-879503

PATIENT
  Age: 90 Year
  Sex: Female

DRUGS (30)
  1. SYNRIBO [Suspect]
     Active Substance: OMACETAXINE MEPESUCCINATE
     Indication: CHRONIC MYELOID LEUKAEMIA
     Dosage: 4 MILLIGRAM DAILY; 2MG/0.57ML
     Route: 065
     Dates: start: 20171208, end: 20171222
  2. SYNRIBO [Suspect]
     Active Substance: OMACETAXINE MEPESUCCINATE
     Dosage: 2MG/0.57ML
     Route: 065
     Dates: start: 20191214
  3. FERROUS SULFATE. [Concomitant]
     Active Substance: FERROUS SULFATE
     Route: 065
  4. METHOCARBAM [Concomitant]
     Active Substance: METHOCARBAMOL
     Route: 065
  5. VITAMIN C [Concomitant]
     Active Substance: ASCORBIC ACID
     Route: 065
  6. COLOSTRUM [Concomitant]
     Active Substance: DIETARY SUPPLEMENT
  7. HOMOCYSTEINE. [Concomitant]
     Active Substance: HOMOCYSTEINE
  8. SELENIUM [Concomitant]
     Active Substance: SELENIUM
  9. TRAZODONE [Concomitant]
     Active Substance: TRAZODONE HYDROCHLORIDE
  10. METOPROLOL. [Concomitant]
     Active Substance: METOPROLOL
  11. HYDROXYUREA. [Concomitant]
     Active Substance: HYDROXYUREA
     Route: 065
  12. MAGNESIUM [Concomitant]
     Active Substance: MAGNESIUM
  13. RESVERATROL [Concomitant]
     Active Substance: DIETARY SUPPLEMENT\RESVERATROL
  14. ACETYLCYST [Concomitant]
  15. VITAMIN E [Concomitant]
     Active Substance: .ALPHA.-TOCOPHEROL
  16. VITAMIN B12 [Concomitant]
     Active Substance: CYANOCOBALAMIN
  17. LATANOPROST. [Concomitant]
     Active Substance: LATANOPROST
  18. RIBOFLAVIN [Concomitant]
     Active Substance: RIBOFLAVIN
  19. MELATONIN [Concomitant]
     Active Substance: MELATONIN
  20. ASPIRIN. [Concomitant]
     Active Substance: ASPIRIN
     Route: 065
  21. XARELTO [Concomitant]
     Active Substance: RIVAROXABAN
  22. UBIQUINOL [Concomitant]
     Active Substance: UBIQUINOL
  23. OMEGA 3 [Concomitant]
     Active Substance: OMEGA-3 FATTY ACIDS
  24. SYNRIBO [Suspect]
     Active Substance: OMACETAXINE MEPESUCCINATE
     Dosage: 2MG/0.57ML
     Route: 065
     Dates: start: 20190402
  25. VITAMIN D3 [Concomitant]
     Active Substance: CHOLECALCIFEROL
  26. LASIX [Concomitant]
     Active Substance: FUROSEMIDE
     Route: 065
  27. DILANTIN [Concomitant]
     Active Substance: PHENYTOIN
     Route: 065
  28. ARMOUR THYROID [Concomitant]
     Active Substance: THYROID, PORCINE
  29. DHEA [Concomitant]
     Active Substance: PRASTERONE
  30. PROBIOTIC [Concomitant]
     Active Substance: PROBIOTICS NOS

REACTIONS (4)
  - Fatigue [Unknown]
  - White blood cell count decreased [Recovering/Resolving]
  - Muscular weakness [Not Recovered/Not Resolved]
  - Alopecia [Recovering/Resolving]

NARRATIVE: CASE EVENT DATE: 20180118
